FAERS Safety Report 6060754-8 (Version None)
Quarter: 2009Q1

REPORT INFORMATION
  Report Type: 
  Country: None (occurrence: None)
  Receive Date: 20090129
  Receipt Date: 20090129
  Transmission Date: 20090719
  Serious: Yes (Other)
  Sender: FDA-Public Use
  Company Number: None

PATIENT
  Sex: Female
  Weight: 92.0802 kg

DRUGS (4)
  1. REMICADE [Suspect]
     Indication: PSORIASIS
     Dosage: 300 MG Q 8 WEEKS IV
     Route: 042
  2. REMICADE [Suspect]
     Indication: RHEUMATOID ARTHRITIS
     Dosage: 300 MG Q 8 WEEKS IV
     Route: 042
  3. PLAQUENIL [Concomitant]
  4. ARAVA [Concomitant]

REACTIONS (1)
  - MALIGNANT MELANOMA [None]
